FAERS Safety Report 23170631 (Version 1)
Quarter: 2023Q4

REPORT INFORMATION
  Report Type: Report from Study
  Country: CO (occurrence: CO)
  Receive Date: 20231110
  Receipt Date: 20231110
  Transmission Date: 20240109
  Serious: Yes (Death, Other)
  Sender: FDA-Public Use
  Company Number: CO-ASTELLAS-2023US033215

PATIENT
  Age: 35 Year
  Sex: Male
  Weight: 46 kg

DRUGS (1)
  1. TACROLIMUS [Suspect]
     Active Substance: TACROLIMUS
     Indication: Renal transplant
     Dosage: 7 MG, ONCE DAILY (5 MG + 2MG)
     Route: 048
     Dates: start: 20220503

REACTIONS (3)
  - Renal failure [Fatal]
  - Bacterial infection [Fatal]
  - Localised infection [Fatal]

NARRATIVE: CASE EVENT DATE: 20230101
